FAERS Safety Report 9531419 (Version 2)
Quarter: 2016Q1

REPORT INFORMATION
  Report Type: Report from Study
  Country: US (occurrence: US)
  Receive Date: 20130918
  Receipt Date: 20160303
  Transmission Date: 20160526
  Serious: Yes (Hospitalization)
  Sender: FDA-Public Use
  Company Number: US-ROCHE-1277288

PATIENT
  Age: 47 Year
  Sex: Female

DRUGS (9)
  1. ACTIVASE [Suspect]
     Active Substance: ALTEPLASE
     Indication: DEEP VEIN THROMBOSIS
  2. HEPARIN [Concomitant]
     Active Substance: HEPARIN SODIUM
     Indication: CARDIAC VENTRICULAR THROMBOSIS
  3. HEPARIN [Concomitant]
     Active Substance: HEPARIN SODIUM
     Indication: PULMONARY EMBOLISM
  4. ACTIVASE [Suspect]
     Active Substance: ALTEPLASE
     Indication: INFARCTION
     Route: 042
     Dates: start: 20130823
  5. HEPARIN [Concomitant]
     Active Substance: HEPARIN SODIUM
     Indication: DEEP VEIN THROMBOSIS
     Dosage: STOPPED V/O PER MD 5000 UNT BOLUS (1000/HR INFUS)
     Route: 065
  6. NORMAL SALINE [Concomitant]
     Active Substance: SODIUM CHLORIDE
     Route: 042
  7. HEPARIN [Concomitant]
     Active Substance: HEPARIN SODIUM
     Indication: PERIPHERAL ISCHAEMIA
  8. ACTIVASE [Suspect]
     Active Substance: ALTEPLASE
     Indication: PULMONARY EMBOLISM
     Dosage: STARTED 50CC/HR X 2HRS
     Route: 042
     Dates: start: 20130823
  9. HEPARIN [Concomitant]
     Active Substance: HEPARIN SODIUM
     Indication: ARTERIAL THROMBOSIS

REACTIONS (2)
  - Hyperhidrosis [Unknown]
  - Dyspnoea [Unknown]

NARRATIVE: CASE EVENT DATE: 20130823
